FAERS Safety Report 6082099-2 (Version None)
Quarter: 2009Q1

REPORT INFORMATION
  Report Type: 
  Country: None (occurrence: None)
  Receive Date: 20090218
  Receipt Date: 20081110
  Transmission Date: 20090719
  Serious: No
  Sender: FDA-Public Use
  Company Number: US-BRISTOL-MYERS SQUIBB COMPANY-14407258

PATIENT
  Age: 60 Year
  Sex: Male

DRUGS (10)
  1. PRINIVIL [Suspect]
     Route: 065
  2. METFORMIN HCL [Suspect]
     Route: 065
  3. GLYBURIDE [Suspect]
     Route: 065
  4. CHANTIX [Suspect]
     Route: 065
  5. INSULIN [Suspect]
     Route: 065
  6. ACTOS [Concomitant]
  7. BYETTA [Concomitant]
  8. LANTUS [Concomitant]
  9. NOVOLOG [Concomitant]
  10. SIMVASTATIN [Concomitant]

REACTIONS (1)
  - MALAISE [None]
